FAERS Safety Report 7439257-1 (Version None)
Quarter: 2011Q2

REPORT INFORMATION
  Report Type: 
  Country: None (occurrence: None)
  Receive Date: 20110427
  Receipt Date: 20110419
  Transmission Date: 20111010
  Serious: Yes (Hospitalization)
  Sender: FDA-Public Use
  Company Number: US-SHIRE-SPV1-2011-00667

PATIENT
  Sex: Male
  Weight: 61.224 kg

DRUGS (5)
  1. INTUNIV [Suspect]
     Indication: ATTENTION DEFICIT/HYPERACTIVITY DISORDER
     Dosage: 1 MG, 1X/DAY:QD
     Route: 048
     Dates: start: 20101027, end: 20101102
  2. INTUNIV [Suspect]
     Dosage: 2 MG, 1X/DAY:QD
     Route: 048
     Dates: start: 20110404, end: 20110404
  3. INTUNIV [Suspect]
     Dosage: 1 MG, 1X/DAY:QD
     Route: 048
     Dates: start: 20110405, end: 20110410
  4. INTUNIV [Suspect]
     Dosage: 3 MG, 1X/DAY:QD
     Route: 048
     Dates: start: 20101110, end: 20110403
  5. INTUNIV [Suspect]
     Dosage: 2 MG, 1X/DAY:QD
     Route: 048
     Dates: start: 20101103, end: 20101109

REACTIONS (1)
  - DYSKINESIA [None]
